FAERS Safety Report 8902063 (Version 3)
Quarter: 2013Q1

REPORT INFORMATION
  Report Type: Spontaneous
  Country: JP (occurrence: JP)
  Receive Date: 20121112
  Receipt Date: 20130206
  Transmission Date: 20140127
  Serious: Yes (Hospitalization)
  Sender: FDA-Public Use
  Company Number: JP-MERCK-1211JPN002886

PATIENT
  Age: 57 Year
  Sex: Female

DRUGS (6)
  1. ZANTAC [Concomitant]
     Dosage: UNK
     Route: 048
     Dates: start: 20120712
  2. LOXONIN [Concomitant]
     Dosage: UNK
     Route: 048
     Dates: start: 20120712
  3. MUCOSTA [Concomitant]
     Dosage: UNK
     Route: 048
     Dates: start: 20120712
  4. FARESTON [Suspect]
     Indication: BREAST CANCER STAGE IV
     Dosage: DAILY DOSE: 120 MG
     Route: 048
     Dates: start: 20120720
  5. FARESTON [Suspect]
     Dosage: 3 DF, QD
     Route: 048
     Dates: start: 20121025
  6. RINDERON (BETAMETHASONE SODIUM PHOSPHATE) [Concomitant]
     Dosage: UNK
     Route: 048
     Dates: start: 20120712

REACTIONS (1)
  - Deep vein thrombosis [Recovered/Resolved]
